FAERS Safety Report 9828268 (Version 3)
Quarter: 2014Q2

REPORT INFORMATION
  Report Type: Spontaneous
  Country: IT (occurrence: IT)
  Receive Date: 20140117
  Receipt Date: 20140421
  Transmission Date: 20141212
  Serious: Yes (Hospitalization)
  Sender: FDA-Public Use
  Company Number: IT-PFIZER INC-2014013674

PATIENT
  Age: 73 Year
  Sex: Female
  Weight: 95 kg

DRUGS (6)
  1. DALACIN C [Suspect]
     Indication: ERYSIPELAS
     Dosage: 600 MG, DAILY
     Route: 048
     Dates: start: 20131219, end: 20131222
  2. AMOXICILLIN TRIHYDRATE/CLAVULANATE POTASSIUM [Interacting]
     Indication: ERYSIPELAS
     Dosage: 3 G, DAILY
     Route: 048
     Dates: start: 20131212, end: 20131222
  3. VASORETIC [Concomitant]
     Dosage: UNK
     Route: 048
  4. VOLTAREN [Concomitant]
     Dosage: UNK
     Route: 048
  5. PANTOPAN [Concomitant]
     Dosage: UNK
  6. CUMADIN [Concomitant]
     Dosage: UNK

REACTIONS (2)
  - Drug interaction [Recovered/Resolved]
  - Erythema [Recovered/Resolved]
